FAERS Safety Report 12714600 (Version 1)
Quarter: 2016Q3

REPORT INFORMATION
  Report Type: Spontaneous
  Country: CN (occurrence: CN)
  Receive Date: 20160905
  Receipt Date: 20160905
  Transmission Date: 20161109
  Serious: Yes (Other)
  Sender: FDA-Public Use
  Company Number: CN-JNJFOC-20160822070

PATIENT

DRUGS (9)
  1. THALIDOMIDE [Suspect]
     Active Substance: THALIDOMIDE
     Indication: PLASMA CELL MYELOMA
     Route: 048
  2. DEXAMETHASONE. [Suspect]
     Active Substance: DEXAMETHASONE
     Indication: PLASMA CELL MYELOMA
     Dosage: 4,40 MG ON DAYS 1 TO 4,9 TO12 AND 17 TO20,MONTHLY FOR A MINIMUM OF 4 CYCLES AND A MAXIMUM OF 6 CYCLE
     Route: 048
  3. DEXAMETHASONE. [Suspect]
     Active Substance: DEXAMETHASONE
     Indication: PLASMA CELL MYELOMA
     Dosage: ON DAYS 1 TO 4 AND 8 TO 11 FOR A MINIMUM OF 4 CYCLES AND MAXIMUM OF 5 CYCLES
     Route: 048
  4. BORTEZOMIB [Suspect]
     Active Substance: BORTEZOMIB
     Indication: PLASMA CELL MYELOMA
     Dosage: ON DAYS 1, 4, 8 AND 11
     Route: 042
  5. DOXORUBICIN [Suspect]
     Active Substance: DOXORUBICIN
     Indication: PLASMA CELL MYELOMA
     Dosage: ON DAY 1 TO 4
     Route: 065
  6. THALIDOMIDE [Suspect]
     Active Substance: THALIDOMIDE
     Indication: PLASMA CELL MYELOMA
     Dosage: WITH 50 MG PER DAY (INCREMENT EACH WEEK) TO MAXIMUM TOLERATED DOSE OF 200 MG PER DAY
     Route: 048
  7. VINCRISTINE [Suspect]
     Active Substance: VINCRISTINE
     Indication: PLASMA CELL MYELOMA
     Route: 065
  8. BORTEZOMIB [Suspect]
     Active Substance: BORTEZOMIB
     Indication: PLASMA CELL MYELOMA
     Route: 042
  9. ASPIRIN. [Concomitant]
     Active Substance: ASPIRIN
     Indication: ANTICOAGULANT THERAPY
     Route: 048

REACTIONS (14)
  - Thrombocytopenia [Unknown]
  - Vomiting [Unknown]
  - Herpes zoster [Unknown]
  - Neutropenia [Unknown]
  - Pyrexia [Unknown]
  - Neuropathy peripheral [Unknown]
  - Product use issue [Unknown]
  - Deep vein thrombosis [Unknown]
  - Upper respiratory tract infection [Unknown]
  - Constipation [Unknown]
  - Diarrhoea [Unknown]
  - Fatigue [Unknown]
  - Off label use [Unknown]
  - Anaemia [Unknown]
